FAERS Safety Report 13360666 (Version 5)
Quarter: 2018Q4

REPORT INFORMATION
  Report Type: Spontaneous
  Country: US (occurrence: US)
  Receive Date: 20170322
  Receipt Date: 20181227
  Transmission Date: 20190204
  Serious: No
  Sender: FDA-Public Use
  Company Number: US-ACTELION-A-US2016-145220

PATIENT
  Age: 36 Year
  Sex: Female
  Weight: 70.3 kg

DRUGS (4)
  1. VELETRI [Suspect]
     Active Substance: EPOPROSTENOL
     Dosage: UNK
     Route: 042
  2. VELETRI [Suspect]
     Active Substance: EPOPROSTENOL
     Indication: PULMONARY HYPERTENSION
     Dosage: 20 NG/KG, PER MIN
     Route: 042
     Dates: start: 20161101
  3. OPSUMIT [Concomitant]
     Active Substance: MACITENTAN
  4. AMLODIPINE [Concomitant]
     Active Substance: AMLODIPINE BESYLATE

REACTIONS (16)
  - Device issue [Unknown]
  - Rash [Unknown]
  - Upper respiratory tract infection [Unknown]
  - Dizziness [Unknown]
  - Product preparation error [Unknown]
  - Device alarm issue [Unknown]
  - Dyspnoea [Unknown]
  - Erythema [Recovered/Resolved]
  - Flushing [Unknown]
  - Oxygen saturation decreased [Unknown]
  - Malaise [Unknown]
  - Hyperhidrosis [Recovered/Resolved]
  - Catheter site pain [Unknown]
  - Catheter site erythema [Unknown]
  - Palpitations [Recovered/Resolved]
  - Urticaria [Unknown]

NARRATIVE: CASE EVENT DATE: 20181127
